FAERS Safety Report 14483973 (Version 2)
Quarter: 2018Q1

REPORT INFORMATION
  Report Type: Spontaneous
  Country: US (occurrence: US)
  Receive Date: 20180205
  Receipt Date: 20180206
  Transmission Date: 20180509
  Serious: Yes (Other)
  Sender: FDA-Public Use
  Company Number: US-JNJFOC-20180128469

PATIENT
  Sex: Female

DRUGS (2)
  1. MOTRIN [Suspect]
     Active Substance: IBUPROFEN
     Route: 065
  2. MOTRIN [Suspect]
     Active Substance: IBUPROFEN
     Indication: LIGAMENT SPRAIN
     Dosage: TOOK 1 MOTRIN 1 DAY AND AGAIN THE NEXT DAY BEFORE THE PAIN STARTED
     Route: 065

REACTIONS (3)
  - Abdominal discomfort [Recovered/Resolved]
  - Gastrointestinal oedema [Recovered/Resolved]
  - Abdominal pain upper [Recovered/Resolved]
